FAERS Safety Report 5719200-3 (Version None)
Quarter: 2008Q2

REPORT INFORMATION
  Report Type: 
  Country: None (occurrence: None)
  Receive Date: 20080428
  Receipt Date: 20080417
  Transmission Date: 20081010
  Serious: Yes (Other)
  Sender: FDA-Public Use
  Company Number: CA-JNJFOC-20080107285

PATIENT
  Sex: Female
  Weight: 57 kg

DRUGS (7)
  1. REMICADE [Suspect]
     Route: 042
  2. REMICADE [Suspect]
     Route: 042
  3. REMICADE [Suspect]
     Indication: POUCHITIS
     Route: 042
  4. INDERAL [Concomitant]
     Indication: PALPITATIONS
     Route: 048
  5. PAXIL [Concomitant]
     Indication: DEPRESSION
     Route: 048
  6. BENADRYL [Concomitant]
     Indication: PREMEDICATION
  7. SOLU-CORTEF [Concomitant]
     Indication: PREMEDICATION

REACTIONS (5)
  - ERYTHEMA [None]
  - INFUSION RELATED REACTION [None]
  - PARAESTHESIA ORAL [None]
  - TONGUE OEDEMA [None]
  - URTICARIA [None]
